FAERS Safety Report 20093864 (Version 2)
Quarter: 2022Q1

REPORT INFORMATION
  Report Type: Report from Study
  Country: US (occurrence: US)
  Receive Date: 20211121
  Receipt Date: 20220209
  Transmission Date: 20220423
  Serious: Yes (Hospitalization, Other)
  Sender: FDA-Public Use
  Company Number: US-ABBVIE-21K-163-4167103-00

PATIENT
  Sex: Male
  Weight: 47.670 kg

DRUGS (5)
  1. DUOPA [Suspect]
     Active Substance: CARBIDOPA\LEVODOPA
     Indication: Parkinson^s disease
     Route: 050
     Dates: start: 20160628
  2. DUOPA [Suspect]
     Active Substance: CARBIDOPA\LEVODOPA
  3. IBUPROFEN [Concomitant]
     Active Substance: IBUPROFEN
     Indication: Product used for unknown indication
  4. PFIZER-BIONTECH COVID-19 VACCINE [Concomitant]
     Active Substance: TOZINAMERAN
     Indication: COVID-19 immunisation
     Route: 030
     Dates: start: 20210901, end: 20210901
  5. PFIZER-BIONTECH COVID-19 VACCINE [Concomitant]
     Active Substance: TOZINAMERAN
     Route: 030
     Dates: start: 20210923, end: 20210923

REACTIONS (15)
  - Malnutrition [Recovered/Resolved]
  - Failure to thrive [Recovered/Resolved]
  - Dehydration [Recovered/Resolved]
  - Eating disorder [Recovered/Resolved]
  - Liver function test abnormal [Recovered/Resolved]
  - Coagulation test abnormal [Recovered/Resolved]
  - Weight decreased [Recovering/Resolving]
  - Syncope [Recovered/Resolved]
  - Unevaluable event [Recovered/Resolved]
  - Skin laceration [Recovered/Resolved]
  - Incorrect route of product administration [Unknown]
  - Device breakage [Unknown]
  - Complication associated with device [Unknown]
  - Weight increased [Not Recovered/Not Resolved]
  - Fall [Recovered/Resolved]

NARRATIVE: CASE EVENT DATE: 20160101
